FAERS Safety Report 5905706-0 (Version None)
Quarter: 2008Q4

REPORT INFORMATION
  Report Type: 
  Country: None (occurrence: None)
  Receive Date: 20081002
  Receipt Date: 20080922
  Transmission Date: 20090506
  Serious: Yes (Life-Threatening, Hospitalization)
  Sender: FDA-Public Use
  Company Number: US-GENENTECH-267964

PATIENT
  Sex: Male
  Weight: 93.5 kg

DRUGS (3)
  1. EFALIZUMAB [Suspect]
     Indication: PSORIASIS
     Dosage: UNK, 1/WEEK
     Route: 058
     Dates: start: 20040616, end: 20080908
  2. ASPIRIN [Concomitant]
     Indication: DRUG USE FOR UNKNOWN INDICATION
  3. PRAVACHOL [Concomitant]
     Indication: HYPERLIPIDAEMIA

REACTIONS (1)
  - PROGRESSIVE MULTIFOCAL LEUKOENCEPHALOPATHY [None]
